FAERS Safety Report 10088114 (Version 10)
Quarter: 2015Q4

REPORT INFORMATION
  Report Type: Spontaneous
  Country: CA (occurrence: CA)
  Receive Date: 20140421
  Receipt Date: 20151230
  Transmission Date: 20160304
  Serious: Yes (Hospitalization, Other)
  Sender: FDA-Public Use
  Company Number: CA-ROCHE-1385620

PATIENT
  Age: 53 Year
  Sex: Female
  Weight: 130 kg

DRUGS (6)
  1. XOLAIR [Suspect]
     Active Substance: OMALIZUMAB
     Route: 058
     Dates: start: 20140514
  2. XOLAIR [Suspect]
     Active Substance: OMALIZUMAB
     Route: 058
     Dates: start: 20140806
  3. XOLAIR [Suspect]
     Active Substance: OMALIZUMAB
     Route: 058
     Dates: start: 20140402
  4. XOLAIR [Suspect]
     Active Substance: OMALIZUMAB
     Indication: ASTHMA
     Route: 058
     Dates: start: 20140319
  5. XOLAIR [Suspect]
     Active Substance: OMALIZUMAB
     Route: 058
     Dates: start: 20140416
  6. XOLAIR [Suspect]
     Active Substance: OMALIZUMAB
     Route: 058
     Dates: start: 20150819

REACTIONS (14)
  - Rales [Unknown]
  - Injection site swelling [Recovered/Resolved]
  - Headache [Recovered/Resolved]
  - Pruritus generalised [Recovered/Resolved]
  - Lower respiratory tract infection [Unknown]
  - Asthma [Unknown]
  - Rhonchi [Unknown]
  - Arthralgia [Unknown]
  - Weight increased [Unknown]
  - Blood pressure increased [Unknown]
  - Chest discomfort [Unknown]
  - Wheezing [Unknown]
  - Respiratory disorder [Not Recovered/Not Resolved]
  - Cough [Unknown]

NARRATIVE: CASE EVENT DATE: 20140319
